FAERS Safety Report 11198232 (Version 1)
Quarter: 2015Q2

REPORT INFORMATION
  Report Type: Spontaneous
  Country: IQ (occurrence: IQ)
  Receive Date: 20150618
  Receipt Date: 20150618
  Transmission Date: 20150821
  Serious: Yes (Other)
  Sender: FDA-Public Use
  Company Number: IQ-ROCHE-1594181

PATIENT
  Sex: Female

DRUGS (3)
  1. DICLOFENAC [Concomitant]
     Active Substance: DICLOFENAC
     Indication: BACK PAIN
     Dosage: 100MG ONCE DAILY
     Route: 048
  2. ETORICOXIB [Concomitant]
     Active Substance: ETORICOXIB
     Indication: BACK PAIN
     Dosage: 90MG ONCE DAILY
     Route: 048
  3. NAPROXEN. [Suspect]
     Active Substance: NAPROXEN
     Indication: BACK PAIN
     Dosage: 500MG TWICE DAILY
     Route: 048

REACTIONS (1)
  - Anovulatory cycle [Unknown]
